FAERS Safety Report 24030591 (Version 1)
Quarter: 2024Q2

REPORT INFORMATION
  Report Type: Report from Study
  Country: US (occurrence: None)
  Receive Date: 20240628
  Receipt Date: 20240628
  Transmission Date: 20240716
  Serious: Yes (Other)
  Sender: FDA-Public Use
  Company Number: 2024A143984

PATIENT
  Sex: Male

DRUGS (4)
  1. BREZTRI [Suspect]
     Active Substance: BUDESONIDE\FORMOTEROL\GLYCOPYRROLATE
     Indication: Product used for unknown indication
     Dosage: 2UG/INHAL TWO TIMES A DAY
     Route: 055
  2. MEDICATION FOR BLOOD PRESSURE [Concomitant]
  3. DIGESTIVE PILLS [Concomitant]
  4. UNSPECIFIED INGREDIENT [Concomitant]
     Active Substance: UNSPECIFIED INGREDIENT

REACTIONS (3)
  - Myocardial infarction [Unknown]
  - Lung disorder [Unknown]
  - Drug intolerance [Unknown]
